FAERS Safety Report 7014571-2 (Version None)
Quarter: 2010Q3

REPORT INFORMATION
  Report Type: 
  Country: None (occurrence: None)
  Receive Date: 20100924
  Receipt Date: 20100924
  Transmission Date: 20110219
  Serious: No
  Sender: FDA-Public Use
  Company Number: None

PATIENT
  Age: 68 Year
  Sex: Female
  Weight: 49.8957 kg

DRUGS (1)
  1. BUSPAR [Suspect]
     Indication: ANXIETY
     Dosage: 1 TAB BID PO
     Route: 048
     Dates: start: 20100703, end: 20100703

REACTIONS (2)
  - CONDITION AGGRAVATED [None]
  - HEART RATE IRREGULAR [None]
